FAERS Safety Report 10984477 (Version 2)
Quarter: 2015Q2

REPORT INFORMATION
  Report Type: Spontaneous
  Country: US (occurrence: US)
  Receive Date: 20150403
  Receipt Date: 20150525
  Transmission Date: 20150821
  Serious: No
  Sender: FDA-Public Use
  Company Number: US-JNJFOC-20130904847

PATIENT
  Sex: Female
  Weight: 63.5 kg

DRUGS (2)
  1. IMODIUM A-D [Suspect]
     Active Substance: LOPERAMIDE HYDROCHLORIDE
     Indication: ABDOMINAL PAIN UPPER
     Dosage: 1/4 TEASPOON, 2-3 TIMES PER DAY
     Route: 048
     Dates: start: 20100909
  2. IMODIUM A-D [Suspect]
     Active Substance: LOPERAMIDE HYDROCHLORIDE
     Indication: DIARRHOEA
     Dosage: 1/4 TEASPOON, 2-3 TIMES PER DAY
     Route: 048
     Dates: start: 20100909

REACTIONS (1)
  - Inappropriate schedule of drug administration [Unknown]
